FAERS Safety Report 15250423 (Version 1)
Quarter: 2018Q3

REPORT INFORMATION
  Report Type: Report from Study
  Country: US (occurrence: US)
  Receive Date: 20180807
  Receipt Date: 20180807
  Transmission Date: 20181010
  Serious: Yes (Death)
  Sender: FDA-Public Use
  Company Number: US-TESARO, INC-US-2018TSO03657

PATIENT
  Sex: Female

DRUGS (1)
  1. ZEJULA [Suspect]
     Active Substance: NIRAPARIB
     Indication: OVARIAN CANCER
     Dosage: 300 MG, QD
     Route: 048
     Dates: start: 20180626

REACTIONS (10)
  - Feeling abnormal [Unknown]
  - Death [Fatal]
  - Incision site inflammation [Unknown]
  - Pain [Unknown]
  - Sleep disorder [Unknown]
  - Asthenia [Unknown]
  - Constipation [Recovering/Resolving]
  - Anxiety [Unknown]
  - Cheilitis [Unknown]
  - Incision site pain [Unknown]
